FAERS Safety Report 11883369 (Version 21)
Quarter: 2021Q3

REPORT INFORMATION
  Report Type: Spontaneous
  Country: US (occurrence: US)
  Receive Date: 20151231
  Receipt Date: 20210927
  Transmission Date: 20211014
  Serious: Yes (Other)
  Sender: FDA-Public Use
  Company Number: US-PFIZER INC-2015471358

PATIENT
  Age: 63 Year
  Sex: Male
  Weight: 104 kg

DRUGS (5)
  1. EFFEXOR XR [Suspect]
     Active Substance: VENLAFAXINE HYDROCHLORIDE
     Dosage: UNK
     Dates: start: 2015
  2. EFFEXOR XR [Suspect]
     Active Substance: VENLAFAXINE HYDROCHLORIDE
     Indication: DEPRESSION
     Dosage: 150 MG, ONCE DAILY
     Route: 048
     Dates: start: 2005
  3. EFFEXOR XR [Suspect]
     Active Substance: VENLAFAXINE HYDROCHLORIDE
     Dosage: 150 MG, 2X/DAY
  4. EFFEXOR XR [Suspect]
     Active Substance: VENLAFAXINE HYDROCHLORIDE
     Dosage: 300 MG, DAILY
     Route: 048
  5. METFORMIN [Concomitant]
     Active Substance: METFORMIN HYDROCHLORIDE
     Indication: DIABETES MELLITUS
     Dosage: 500 MG, 2X/DAY [500 MG, TWICE A DAY]

REACTIONS (11)
  - Blood cholesterol increased [Unknown]
  - Feeling jittery [Unknown]
  - Cardiac disorder [Unknown]
  - Malaise [Unknown]
  - Blood pressure increased [Unknown]
  - Irritability [Unknown]
  - Myocardial infarction [Unknown]
  - Obesity [Unknown]
  - Drug ineffective [Unknown]
  - Prescribed overdose [Unknown]
  - Lipids increased [Unknown]

NARRATIVE: CASE EVENT DATE: 2007
